FAERS Safety Report 12156074 (Version 1)
Quarter: 2016Q1

REPORT INFORMATION
  Report Type: Spontaneous
  Country: BR (occurrence: BR)
  Receive Date: 20160307
  Receipt Date: 20160307
  Transmission Date: 20160526
  Serious: Yes (Other)
  Sender: FDA-Public Use
  Company Number: BR-SYMPLMED PHARMACEUTICALS-2016SYMPLMED000161

PATIENT

DRUGS (5)
  1. ACERTIL [Suspect]
     Active Substance: PERINDOPRIL ARGININE
     Indication: HYPERTENSION
     Dosage: 10 MG, QD
     Route: 048
     Dates: start: 201502
  2. THIOCTIC ACID [Concomitant]
     Active Substance: THIOCTIC ACID
     Indication: DIABETES MELLITUS
     Dosage: 600 MG, QD
     Dates: start: 201508, end: 201512
  3. INSULIN LISPRO [Concomitant]
     Active Substance: INSULIN LISPRO
     Indication: DIABETES MELLITUS
     Dosage: DOSAGE RELATED TO THE GLYCAEMIA IN THE MORNING
     Dates: start: 201508
  4. ROSUVASTATIN [Concomitant]
     Active Substance: ROSUVASTATIN
     Indication: DIABETES MELLITUS
     Dosage: 10 MG, QD
     Dates: start: 201508, end: 201512
  5. BENFOTIAMINE [Concomitant]
     Active Substance: BENFOTIAMINE
     Indication: DIABETES MELLITUS
     Dosage: 150 MG, QD
     Dates: start: 201508, end: 20160223

REACTIONS (6)
  - Dizziness [Recovered/Resolved]
  - Dyspnoea [Recovered/Resolved]
  - Fatigue [Recovered/Resolved]
  - Headache [Recovered/Resolved]
  - Hypertensive crisis [Recovered/Resolved]
  - Chest pain [Recovered/Resolved]

NARRATIVE: CASE EVENT DATE: 201511
